FAERS Safety Report 18307500 (Version 1)
Quarter: 2020Q3

REPORT INFORMATION
  Report Type: Spontaneous
  Country: US (occurrence: US)
  Receive Date: 20200924
  Receipt Date: 20200924
  Transmission Date: 20201103
  Serious: Yes (Other)
  Sender: FDA-Public Use
  Company Number: US-IBIGEN-2020.09033

PATIENT
  Age: 29 Year
  Sex: Male

DRUGS (2)
  1. PANTOPRAZOLE [Concomitant]
     Active Substance: PANTOPRAZOLE
  2. PIPERACILLIN/TAZOBACTAM [Suspect]
     Active Substance: PIPERACILLIN SODIUM\TAZOBACTAM SODIUM
     Dosage: PIPERACILLIN?TAZOBACTAM (PT) 3.375
     Route: 041

REACTIONS (3)
  - Tubulointerstitial nephritis [Not Recovered/Not Resolved]
  - Hypersensitivity [Not Recovered/Not Resolved]
  - Transcription medication error [Unknown]
